FAERS Safety Report 20851632 (Version 1)
Quarter: 2022Q2

REPORT INFORMATION
  Report Type: Spontaneous
  Country: FR (occurrence: FR)
  Receive Date: 20220520
  Receipt Date: 20220520
  Transmission Date: 20220720
  Serious: Yes (Other)
  Sender: FDA-Public Use
  Company Number: FR-AFSSAPS-ST20221187

PATIENT
  Age: 69 Year
  Sex: Male

DRUGS (3)
  1. AMOXICILLIN [Suspect]
     Active Substance: AMOXICILLIN
     Indication: Tooth infection
     Dosage: UNK
     Route: 048
     Dates: start: 20210616, end: 20210617
  2. CEFIXIME [Suspect]
     Active Substance: CEFIXIME
     Indication: Tooth infection
     Dosage: UNK
     Route: 048
     Dates: start: 20210617, end: 20210621
  3. Solupred [Concomitant]
     Indication: Tooth infection
     Dosage: UNK
     Route: 048
     Dates: start: 20210616

REACTIONS (1)
  - Acute generalised exanthematous pustulosis [Recovered/Resolved]

NARRATIVE: CASE EVENT DATE: 20210617
